FAERS Safety Report 9590162 (Version 1)
Quarter: 2013Q4

REPORT INFORMATION
  Report Type: Spontaneous
  Country: US (occurrence: US)
  Receive Date: 20131003
  Receipt Date: 20131003
  Transmission Date: 20140711
  Serious: No
  Sender: FDA-Public Use
  Company Number: US-AMGEN-USASP2012074940

PATIENT
  Age: 51 Year
  Sex: Male

DRUGS (1)
  1. ENBREL [Suspect]
     Indication: PSORIASIS
     Dosage: 50 MG, QWK
     Dates: start: 20120525, end: 20121110

REACTIONS (5)
  - Burning sensation [Not Recovered/Not Resolved]
  - Pyrexia [Recovered/Resolved]
  - Swelling face [Not Recovered/Not Resolved]
  - Purulent discharge [Recovered/Resolved]
  - Gingival abscess [Not Recovered/Not Resolved]
